FAERS Safety Report 9087293 (Version 3)
Quarter: 2013Q3

REPORT INFORMATION
  Report Type: Report from Study
  Country: US (occurrence: US)
  Receive Date: 20130201
  Receipt Date: 20130705
  Transmission Date: 20140515
  Serious: Yes (Other)
  Sender: FDA-Public Use
  Company Number: PHEH2013US002695

PATIENT
  Age: 44 Year
  Sex: Female
  Weight: 74 kg

DRUGS (10)
  1. TASIGNA [Suspect]
     Dosage: 150 MG, BID
     Route: 048
  2. ESTRATEST [Concomitant]
  3. PROMETRIUM [Concomitant]
  4. DIOVAN HCT [Concomitant]
     Dosage: 160-12.5
  5. OMEPRAZOLE [Concomitant]
  6. ZOFRAN [Concomitant]
  7. DIAMOX                                  /CAN/ [Concomitant]
  8. NORCO [Concomitant]
     Dosage: 7.5-13.5
  9. POTASSIUM CHLORIDE [Concomitant]
  10. PROCHLORPERAZ [Concomitant]
     Dosage: 5 MG

REACTIONS (15)
  - Gingival bleeding [Unknown]
  - Lip haemorrhage [Unknown]
  - Pigmentation disorder [Unknown]
  - Blood potassium decreased [Unknown]
  - Blood magnesium decreased [Unknown]
  - Fatigue [Unknown]
  - Nausea [Recovered/Resolved]
  - Vomiting [Recovered/Resolved]
  - Diarrhoea [Unknown]
  - Constipation [Unknown]
  - Haemorrhoids [Unknown]
  - Pruritus [Unknown]
  - Bone pain [Unknown]
  - Alopecia [Unknown]
  - Insomnia [Unknown]
